FAERS Safety Report 12555886 (Version 1)
Quarter: 2016Q3

REPORT INFORMATION
  Report Type: Spontaneous
  Country: US (occurrence: US)
  Receive Date: 20160714
  Receipt Date: 20160714
  Transmission Date: 20161109
  Serious: Yes (Other)
  Sender: FDA-Public Use
  Company Number: US-ASTRAZENECA-2016SE74173

PATIENT
  Sex: Female

DRUGS (2)
  1. ACCOLATE [Concomitant]
     Active Substance: ZAFIRLUKAST
  2. SYMBICORT [Suspect]
     Active Substance: BUDESONIDE\FORMOTEROL FUMARATE DIHYDRATE
     Route: 055

REACTIONS (2)
  - Sepsis [Unknown]
  - Asthma [Unknown]
